FAERS Safety Report 24022664 (Version 2)
Quarter: 2025Q1

REPORT INFORMATION
  Report Type: Report from Study
  Country: US (occurrence: US)
  Receive Date: 20240627
  Receipt Date: 20250114
  Transmission Date: 20250409
  Serious: Yes (Hospitalization)
  Sender: BIOGEN
  Company Number: US-BIOGEN-2024BI01270782

PATIENT
  Age: 52 Year
  Sex: Female

DRUGS (2)
  1. PLEGRIDY [Suspect]
     Active Substance: PEGINTERFERON BETA-1A
     Indication: Multiple sclerosis
     Route: 050
     Dates: start: 20211029
  2. PLEGRIDY [Suspect]
     Active Substance: PEGINTERFERON BETA-1A
     Route: 050
     Dates: end: 202406

REACTIONS (1)
  - Multiple sclerosis relapse [Recovered/Resolved]

NARRATIVE: CASE EVENT DATE: 20240531
